FAERS Safety Report 8170201-8 (Version None)
Quarter: 2012Q1

REPORT INFORMATION
  Report Type: 
  Country: None (occurrence: None)
  Receive Date: 20120228
  Receipt Date: 20120217
  Transmission Date: 20120608
  Serious: Yes (Other)
  Sender: FDA-Public Use
  Company Number: BE-MILLENNIUM PHARMACEUTICALS, INC.-2012-00263

PATIENT

DRUGS (6)
  1. VELCADE [Suspect]
     Dosage: 2.6 MG, UNK
     Route: 065
     Dates: start: 20120221, end: 20120221
  2. VELCADE [Suspect]
     Dosage: 2.57 MG, UNK
     Route: 065
     Dates: start: 20120127, end: 20120131
  3. MOTILIUM                           /00498201/ [Concomitant]
  4. VELCADE [Suspect]
     Indication: PRODUCT USED FOR UNKNOWN INDICATION
     Dosage: 2.6 MG, UNK
     Route: 065
     Dates: start: 20120103, end: 20120113
  5. VELCADE [Suspect]
     Dosage: 2.57 MG, UNK
     Dates: start: 20120217, end: 20120217
  6. IMODIUM [Concomitant]

REACTIONS (9)
  - CONFUSIONAL STATE [None]
  - DYSPNOEA [None]
  - HYPOAESTHESIA [None]
  - DIARRHOEA [None]
  - ASTHENIA [None]
  - SLEEP TALKING [None]
  - ASTHMA [None]
  - DECREASED APPETITE [None]
  - FATIGUE [None]
